FAERS Safety Report 23112082 (Version 2)
Quarter: 2023Q4

REPORT INFORMATION
  Report Type: Report from Study
  Country: US (occurrence: US)
  Receive Date: 20231026
  Receipt Date: 20231215
  Transmission Date: 20240110
  Serious: No
  Sender: FDA-Public Use
  Company Number: US-002147023-NVSC2023US228969

PATIENT
  Age: 56 Year
  Sex: Female

DRUGS (2)
  1. COSENTYX [Suspect]
     Active Substance: SECUKINUMAB
     Indication: Rheumatoid arthritis
     Dosage: 150 MG, OTHER (1X WEEK; 4 TIMES LOADING. EVERY 28 DAYS AFTER)
     Route: 058
     Dates: start: 20230420, end: 20230922
  2. COSENTYX [Suspect]
     Active Substance: SECUKINUMAB
     Indication: Psoriatic arthropathy

REACTIONS (4)
  - Mental disorder [Unknown]
  - Urinary tract infection [Unknown]
  - Herpes zoster [Unknown]
  - Sinusitis [Unknown]

NARRATIVE: CASE EVENT DATE: 20230428
